FAERS Safety Report 25021245 (Version 3)
Quarter: 2025Q2

REPORT INFORMATION
  Report Type: Report from Study
  Country: JP (occurrence: JP)
  Receive Date: 20250228
  Receipt Date: 20250425
  Transmission Date: 20250717
  Serious: Yes (Death, Hospitalization, Other)
  Sender: TAKEDA
  Company Number: JP-TAKEDA-2025TJP002154

PATIENT
  Age: 70 Year
  Sex: Female
  Weight: 45.4 kg

DRUGS (20)
  1. MARIBAVIR [Suspect]
     Active Substance: MARIBAVIR
     Indication: Cytomegalovirus infection
     Dates: start: 20241010, end: 20241023
  2. ELTROMBOPAG OLAMINE [Concomitant]
     Active Substance: ELTROMBOPAG OLAMINE
  3. LEVOTHYROXINE SODIUM [Concomitant]
     Active Substance: LEVOTHYROXINE SODIUM
  4. RAMELTEON [Concomitant]
     Active Substance: RAMELTEON
  5. TRAZODONE HYDROCHLORIDE [Concomitant]
     Active Substance: TRAZODONE HYDROCHLORIDE
  6. FEBUXOSTAT [Concomitant]
     Active Substance: FEBUXOSTAT
  7. NIZORAL [Concomitant]
     Active Substance: KETOCONAZOLE
  8. LOCOID [Concomitant]
     Active Substance: HYDROCORTISONE BUTYRATE
  9. BETAMETHASONE DIPROPIONATE [Concomitant]
     Active Substance: BETAMETHASONE DIPROPIONATE
  10. GLYCOSAMINOGLYCANS [Concomitant]
     Active Substance: GLYCOSAMINOGLYCANS
  11. BILANOA OD [Concomitant]
  12. LEVOFLOXACIN HEMIHYDRATE [Concomitant]
     Active Substance: LEVOFLOXACIN
  13. FLUCONAZOLE [Concomitant]
     Active Substance: FLUCONAZOLE
  14. ACYCLOVIR [Concomitant]
     Active Substance: ACYCLOVIR
  15. CLARITHROMYCIN [Concomitant]
     Active Substance: CLARITHROMYCIN
  16. VEMLIDY [Concomitant]
     Active Substance: TENOFOVIR ALAFENAMIDE FUMARATE
     Indication: Hepatitis B DNA assay positive
  17. CUBICIN [Concomitant]
     Active Substance: DAPTOMYCIN
     Indication: Sepsis
  18. CANCIDAS [Concomitant]
     Active Substance: CASPOFUNGIN ACETATE
     Indication: Sepsis
  19. ZYVOX [Concomitant]
     Active Substance: LINEZOLID
     Indication: Sepsis
  20. MEROPENEM [Concomitant]
     Active Substance: MEROPENEM

REACTIONS (3)
  - Renal failure [Fatal]
  - Sepsis [Not Recovered/Not Resolved]
  - Hepatitis B DNA assay positive [Recovered/Resolved]

NARRATIVE: CASE EVENT DATE: 20241024
